FAERS Safety Report 8311562-6 (Version None)
Quarter: 2012Q1

REPORT INFORMATION
  Report Type: 
  Country: None (occurrence: None)
  Receive Date: 20120315
  Receipt Date: 20110223
  Transmission Date: 20120608
  Serious: Yes (Hospitalization, Other)
  Sender: FDA-Public Use
  Company Number: PHHY2011US12573

PATIENT
  Age: 55 Year
  Sex: Female

DRUGS (6)
  1. GILENYA [Suspect]
     Indication: MULTIPLE SCLEROSIS
     Dosage: 0.5 MG, QD, ORAL
     Route: 048
     Dates: start: 20110117, end: 20110117
  2. SIMVASTATIN [Concomitant]
  3. VITAMIN B12 [Concomitant]
  4. TRAMADOL HCL [Concomitant]
  5. AMPYRA [Concomitant]
  6. CALCIUM CARBONATE [Concomitant]

REACTIONS (1)
  - BRADYCARDIA [None]
